FAERS Safety Report 25988481 (Version 1)
Quarter: 2025Q4

REPORT INFORMATION
  Report Type: Spontaneous
  Country: CN (occurrence: CN)
  Receive Date: 20251103
  Receipt Date: 20251103
  Transmission Date: 20260118
  Serious: Yes (Other)
  Sender: BOEHRINGER INGELHEIM
  Company Number: CN-Komodo Health-a23aa00000BeVbRAAV

PATIENT
  Age: 40 Year
  Sex: Male
  Weight: 60 kg

DRUGS (1)
  1. PRADAXA [Suspect]
     Active Substance: DABIGATRAN ETEXILATE MESYLATE
     Indication: Anticoagulant therapy
     Dates: start: 2017

REACTIONS (3)
  - Renal necrosis [Unknown]
  - Infarction [Unknown]
  - Disease progression [Unknown]

NARRATIVE: CASE EVENT DATE: 20251023
